FAERS Safety Report 23292865 (Version 1)
Quarter: 2023Q4

REPORT INFORMATION
  Report Type: Spontaneous
  Country: US (occurrence: None)
  Receive Date: 20231212
  Receipt Date: 20231212
  Transmission Date: 20240109
  Serious: Yes (Other)
  Sender: FDA-Public Use
  Company Number: None

PATIENT
  Sex: 0

DRUGS (1)
  1. ETHYL ALCOHOL 70% JW SANITIZER [Suspect]
     Active Substance: ALCOHOL

REACTIONS (2)
  - Application site swelling [None]
  - Peripheral swelling [None]

NARRATIVE: CASE EVENT DATE: 20231211
